FAERS Safety Report 24043361 (Version 1)
Quarter: 2024Q3

REPORT INFORMATION
  Report Type: Spontaneous
  Country: US (occurrence: US)
  Receive Date: 20240703
  Receipt Date: 20240703
  Transmission Date: 20241017
  Serious: No
  Sender: BAUSCH AND LOMB
  Company Number: US-BAUSCHBL-2024BNL029262

PATIENT
  Age: 65 Year
  Sex: Female

DRUGS (2)
  1. XIIDRA [Suspect]
     Active Substance: LIFITEGRAST
     Indication: Dry eye
     Route: 047
     Dates: start: 202401
  2. REFRESH [CARMELLOSE SODIUM] [Concomitant]
     Indication: Product used for unknown indication
     Route: 047

REACTIONS (2)
  - Eye discharge [Unknown]
  - Treatment noncompliance [Unknown]
